FAERS Safety Report 4311148-4 (Version None)
Quarter: 2004Q1

REPORT INFORMATION
  Report Type: 
  Country: None (occurrence: None)
  Receive Date: 20040302
  Receipt Date: 20040217
  Transmission Date: 20041129
  Serious: Yes (Other)
  Sender: FDA-Public Use
  Company Number: 2004-113118-NL

PATIENT
  Age: 38 Year
  Sex: Female
  Weight: 97.27 kg

DRUGS (1)
  1. NUVARING [Suspect]
     Indication: CONTRACEPTION
     Dosage: VAGINAL
     Route: 067
     Dates: start: 20040205, end: 20040216

REACTIONS (3)
  - FLUSHING [None]
  - PALPITATIONS [None]
  - SUICIDAL IDEATION [None]
